FAERS Safety Report 6003592-4 (Version None)
Quarter: 2008Q4

REPORT INFORMATION
  Report Type: 
  Country: None (occurrence: None)
  Receive Date: 20081212
  Receipt Date: 20081212
  Transmission Date: 20090506
  Serious: Yes (Other)
  Sender: FDA-Public Use
  Company Number: None

PATIENT
  Age: 44 Year
  Sex: Female
  Weight: 54 kg

DRUGS (1)
  1. NUPERCAINAL (NCH) (CINCHOCAINE) OINTMENT [Suspect]
     Indication: HAEMORRHOIDS
     Dosage: NOT MORE THAN 3
     Route: 061
     Dates: start: 20070101

REACTIONS (2)
  - INFLAMMATION [None]
  - TREATMENT FAILURE [None]
